FAERS Safety Report 4575856-2 (Version None)
Quarter: 2005Q1

REPORT INFORMATION
  Report Type: 
  Country: None (occurrence: None)
  Receive Date: 20050201
  Receipt Date: 20050201
  Transmission Date: 20050727
  Serious: No
  Sender: FDA-Public Use
  Company Number: None

PATIENT
  Age: 69 Year
  Sex: Male

DRUGS (5)
  1. OMEPRAZOLE [Suspect]
     Dosage: ONE CAPSULE BY MOUTH DAILY
     Route: 048
     Dates: start: 20041001
  2. LISINOPRIL [Concomitant]
  3. ALLOPURINOL [Concomitant]
  4. ZETIA [Concomitant]
  5. NASONEX [Concomitant]

REACTIONS (1)
  - DRUG INEFFECTIVE [None]
